FAERS Safety Report 8839270 (Version 1)
Quarter: 2012Q4

REPORT INFORMATION
  Report Type: Spontaneous
  Country: US (occurrence: None)
  Receive Date: 20121011
  Receipt Date: 20121011
  Transmission Date: 20130627
  Serious: Yes (Other)
  Sender: FDA-Public Use
  Company Number: None

PATIENT
  Age: 46 Year
  Sex: Male

DRUGS (2)
  1. CREST PRO-HEALTH RINSE [Suspect]
     Indication: TOOTH EXTRACTION
     Route: 048
     Dates: start: 20121007, end: 20121008
  2. CREST PRO-HEALTH RINSE [Suspect]
     Route: 048
     Dates: start: 20121007, end: 20121008

REACTIONS (5)
  - Tongue blistering [None]
  - Oral discomfort [None]
  - Glossodynia [None]
  - Glossodynia [None]
  - Aphagia [None]
